FAERS Safety Report 9155825 (Version 1)
Quarter: 2013Q1

REPORT INFORMATION
  Report Type: Spontaneous
  Country: US (occurrence: US)
  Receive Date: 20130311
  Receipt Date: 20130311
  Transmission Date: 20140127
  Serious: Yes (Life-Threatening, Hospitalization)
  Sender: FDA-Public Use
  Company Number: US-CELGENEUS-163-21880-13031062

PATIENT
  Sex: Male
  Weight: 97.16 kg

DRUGS (1)
  1. REVLIMID [Suspect]
     Indication: MONOCLONAL GAMMOPATHY
     Dosage: 25 MILLIGRAM
     Route: 048
     Dates: start: 201301

REACTIONS (3)
  - Nephritis [Unknown]
  - Pericarditis [Unknown]
  - Myocardial infarction [Unknown]
